FAERS Safety Report 6687367-9 (Version None)
Quarter: 2010Q2

REPORT INFORMATION
  Report Type: 
  Country: None (occurrence: None)
  Receive Date: 20100416
  Receipt Date: 20100416
  Transmission Date: 20101027
  Serious: Yes (Life-Threatening)
  Sender: FDA-Public Use
  Company Number: None

PATIENT
  Sex: Female
  Weight: 65.3 kg

DRUGS (17)
  1. RITUXIMAB [Suspect]
     Indication: B-CELL LYMPHOMA
     Dosage: 5 CYCLES GIVEN IV
     Route: 042
     Dates: end: 20090715
  2. TYLENON ARTHRITIS [Concomitant]
  3. CALCIUM CARBONATE WITH VITAMIN D [Concomitant]
  4. COLACE [Concomitant]
  5. GLUCOSAMINE CHONDROITIN [Concomitant]
  6. SYNTHROID [Concomitant]
  7. MECLIZINE [Concomitant]
  8. METOPROLOLOL [Concomitant]
  9. MULTIVITAMIN WITH LYCOPENE [Concomitant]
  10. OMEGA-3 FATTY ACID [Concomitant]
  11. PROTONIX [Concomitant]
  12. MIRAPEX [Concomitant]
  13. PROMETHAZINE [Concomitant]
  14. ZOLOFT [Concomitant]
  15. TRAMADOL HCL [Concomitant]
  16. DIOVAN HCT [Concomitant]
  17. AMBIEN [Concomitant]

REACTIONS (10)
  - ASTHENIA [None]
  - CONFUSIONAL STATE [None]
  - CYTOMEGALOVIRUS VIRAEMIA [None]
  - DISORIENTATION [None]
  - FEBRILE NEUTROPENIA [None]
  - GAIT DISTURBANCE [None]
  - MENTAL STATUS CHANGES [None]
  - PROGRESSIVE MULTIFOCAL LEUKOENCEPHALOPATHY [None]
  - SEPSIS [None]
  - VISUAL ACUITY REDUCED [None]
